FAERS Safety Report 20999715 (Version 1)
Quarter: 2022Q2

REPORT INFORMATION
  Report Type: Spontaneous
  Country: US (occurrence: None)
  Receive Date: 20220623
  Receipt Date: 20220623
  Transmission Date: 20220721
  Serious: Yes (Other)
  Sender: FDA-Public Use
  Company Number: None

PATIENT
  Age: 84 Year
  Sex: Female
  Weight: 56.25 kg

DRUGS (5)
  1. PAXLOVID [Suspect]
     Active Substance: NIRMATRELVIR\RITONAVIR
     Indication: COVID-19
     Dosage: FREQUENCY : TWICE A DAY;?
     Route: 048
     Dates: start: 20220621, end: 20220623
  2. Prolasec [Concomitant]
     Dates: start: 20150101
  3. TIMOLOL [Concomitant]
     Active Substance: TIMOLOL
     Dates: start: 20150101
  4. VITAMINS [Concomitant]
     Active Substance: VITAMINS
     Dates: start: 20220401
  5. Pro Biotics [Concomitant]
     Dates: start: 20190101

REACTIONS (2)
  - Diarrhoea [None]
  - Vomiting [None]

NARRATIVE: CASE EVENT DATE: 20220622
